FAERS Safety Report 6422304-3 (Version None)
Quarter: 2009Q4

REPORT INFORMATION
  Report Type: 
  Country: None (occurrence: None)
  Receive Date: 20091030
  Receipt Date: 20091008
  Transmission Date: 20100525
  Serious: Yes (Hospitalization, Other)
  Sender: FDA-Public Use
  Company Number: US-ELI_LILLY_AND_COMPANY-US200910007127

PATIENT
  Sex: Female

DRUGS (2)
  1. FORTEO [Suspect]
     Dates: end: 20090101
  2. ESTROGEN NOS [Concomitant]

REACTIONS (1)
  - SMALL INTESTINAL OBSTRUCTION [None]
